FAERS Safety Report 13681336 (Version 1)
Quarter: 2017Q2

REPORT INFORMATION
  Report Type: Spontaneous
  Country: US (occurrence: US)
  Receive Date: 20170623
  Receipt Date: 20170623
  Transmission Date: 20170830
  Serious: No
  Sender: FDA-Public Use
  Company Number: US-PFIZER INC-2017265022

PATIENT
  Sex: Male

DRUGS (7)
  1. XALKORI [Concomitant]
     Active Substance: CRIZOTINIB
     Dosage: UNK
  2. KYTRIL [Concomitant]
     Active Substance: GRANISETRON HYDROCHLORIDE
     Dosage: 1 MG, UNK
  3. CRIZOTINIB [Suspect]
     Active Substance: CRIZOTINIB
     Indication: LUNG NEOPLASM MALIGNANT
     Dosage: UNK
     Dates: start: 201507
  4. ATEZOLIZUMAB [Concomitant]
     Active Substance: ATEZOLIZUMAB
     Dosage: 1200 MG, UNK, (Q3WKS)
     Dates: start: 201706
  5. ANDROGEL [Concomitant]
     Active Substance: TESTOSTERONE
     Dosage: UNK, (20.25MG/1.25 GRAM )
     Route: 062
  6. ATENOLOL. [Concomitant]
     Active Substance: ATENOLOL
     Dosage: 100 MG, DAILY
     Route: 048
  7. SIMVASTATIN. [Concomitant]
     Active Substance: SIMVASTATIN
     Dosage: 20 MG, DAILY
     Route: 048

REACTIONS (1)
  - Neoplasm progression [Unknown]
